FAERS Safety Report 8953924 (Version 2)
Quarter: 2012Q4

REPORT INFORMATION
  Report Type: 
  Country: JP (occurrence: JP)
  Receive Date: 20121206
  Receipt Date: 20121227
  Transmission Date: 20130627
  Serious: Yes (Hospitalization)
  Sender: FDA-Public Use
  Company Number: JP-009507513-1212JPN000390

PATIENT
  Age: 50 Year
  Sex: Male
  Weight: 86.4 kg

DRUGS (8)
  1. GASTER [Suspect]
     Indication: POSTOPERATIVE CARE
     Dosage: 20 mg, bid
     Route: 048
     Dates: start: 20120728, end: 20120818
  2. CELECOX [Suspect]
     Indication: POSTOPERATIVE CARE
     Dosage: 100 mg, bid
     Route: 048
     Dates: start: 20120728, end: 20120813
  3. MERISLON [Concomitant]
     Indication: POSTOPERATIVE CARE
     Dosage: UNK
     Dates: start: 20120728, end: 20120818
  4. METHYCOBAL [Concomitant]
     Indication: POSTOPERATIVE CARE
     Dosage: UNK
     Dates: start: 20120728, end: 20120818
  5. PREDONINE [Concomitant]
     Indication: POSTOPERATIVE CARE
     Dosage: UNK
     Dates: end: 20120816
  6. PREDONINE [Concomitant]
     Indication: POSTOPERATIVE CARE
     Dosage: UNK
     Dates: start: 20120724
  7. ULTIVA [Concomitant]
     Indication: GENERAL ANAESTHESIA
     Dosage: UNK
     Dates: start: 20120724, end: 20120724
  8. PROPOFOL [Concomitant]
     Indication: GENERAL ANAESTHESIA
     Dosage: UNK
     Dates: start: 20120724, end: 20120724

REACTIONS (2)
  - Rash [Recovering/Resolving]
  - Intentional drug misuse [Unknown]
